FAERS Safety Report 4510665-1 (Version None)
Quarter: 2004Q4

REPORT INFORMATION
  Report Type: 
  Country: None (occurrence: None)
  Receive Date: 20041123
  Receipt Date: 20040426
  Transmission Date: 20050328
  Serious: Yes (Death)
  Sender: FDA-Public Use
  Company Number: 2004S1001032

PATIENT
  Age: 59 Year
  Sex: Male

DRUGS (8)
  1. CLOZAPINE [Suspect]
     Indication: SCHIZOPHRENIA
     Dosage: 50MG QD + 175MG QHS, ORAL
     Route: 048
     Dates: start: 20031020, end: 20040322
  2. CLOZAPINE [Suspect]
     Indication: DRUG RESISTANCE
     Dosage: 50MG QD + 175MG QHS, ORAL
     Route: 048
     Dates: start: 20031020, end: 20040322
  3. CLOZAPINE [Suspect]
     Indication: SCHIZOPHRENIA
     Dosage: 50MG QD + 175MG QHS, ORAL
     Route: 048
     Dates: start: 20031020, end: 20040322
  4. GABAPENTIN [Concomitant]
  5. ZIPRASIDONE [Concomitant]
  6. BENZTROPINE MESYLATE [Concomitant]
  7. DIVALPROEX ER 500 MG [Concomitant]
  8. DOCUSATE 100 MG [Concomitant]

REACTIONS (1)
  - PNEUMONIA [None]
